FAERS Safety Report 7199996-7 (Version None)
Quarter: 2010Q4

REPORT INFORMATION
  Report Type: 
  Country: None (occurrence: None)
  Receive Date: 20101228
  Receipt Date: 20101213
  Transmission Date: 20110411
  Serious: Yes (Other)
  Sender: FDA-Public Use
  Company Number: GXKR2010IT14105

PATIENT
  Age: 35 Year
  Sex: Female

DRUGS (1)
  1. LEUPRORELIN [Suspect]
     Indication: LEIOMYOMA
     Dosage: UNK
     Route: 065

REACTIONS (1)
  - ENDOMETRIAL METAPLASIA [None]
